FAERS Safety Report 5232539-3 (Version None)
Quarter: 2007Q1

REPORT INFORMATION
  Report Type: 
  Country: None (occurrence: None)
  Receive Date: 20070207
  Receipt Date: 20070201
  Transmission Date: 20070707
  Serious: Yes (Hospitalization)
  Sender: FDA-Public Use
  Company Number: JP-JPN-A200603462

PATIENT
  Age: 35 Year
  Sex: Female
  Weight: 56 kg

DRUGS (16)
  1. PAXIL [Suspect]
     Indication: DRUG USE FOR UNKNOWN INDICATION
     Dosage: 10MG PER DAY
     Route: 048
     Dates: start: 20060801, end: 20060823
  2. NITRAZEPAM [Concomitant]
     Indication: INSOMNIA
     Route: 048
  3. AMOBAN [Concomitant]
     Indication: INSOMNIA
     Route: 048
  4. LULLAN [Concomitant]
     Indication: INSOMNIA
     Route: 048
  5. TEGRETOL [Concomitant]
     Indication: DEPRESSION
     Route: 048
  6. TRYPTANOL [Concomitant]
     Indication: DEPRESSION
     Route: 048
  7. DEPAS [Concomitant]
     Indication: ANXIETY DISORDER
     Route: 048
  8. BACLOFEN [Concomitant]
     Route: 048
  9. NOVOLIN R [Concomitant]
     Indication: DIABETES MELLITUS
     Route: 058
  10. ROCALTROL [Concomitant]
     Indication: DIABETIC NEPHROPATHY
     Route: 048
  11. TANKARU [Concomitant]
     Indication: DIABETIC NEPHROPATHY
     Dosage: 500MG PER DAY
     Route: 048
  12. NORVASC [Concomitant]
     Indication: HYPERTENSION
     Route: 048
  13. MICARDIS [Concomitant]
     Indication: HYPERTENSION
     Route: 048
  14. NAUZELIN [Concomitant]
     Indication: PEPTIC ULCER
     Route: 048
  15. SLOW-FE [Concomitant]
     Route: 048
  16. OMEPRAL [Concomitant]
     Indication: PEPTIC ULCER
     Route: 048

REACTIONS (9)
  - DECREASED APPETITE [None]
  - DEPRESSED LEVEL OF CONSCIOUSNESS [None]
  - DYSKINESIA [None]
  - HYPERHIDROSIS [None]
  - HYPERTENSION [None]
  - IRRITABILITY [None]
  - NAUSEA [None]
  - SEROTONIN SYNDROME [None]
  - TACHYCARDIA [None]
